FAERS Safety Report 6668245-8 (Version None)
Quarter: 2010Q2

REPORT INFORMATION
  Report Type: 
  Country: None (occurrence: None)
  Receive Date: 20100406
  Receipt Date: 20100325
  Transmission Date: 20101027
  Serious: Yes (Hospitalization)
  Sender: FDA-Public Use
  Company Number: US-JNJFOC-20100307852

PATIENT
  Sex: Female
  Weight: 54.43 kg

DRUGS (2)
  1. ORTHO EVRA [Suspect]
     Indication: CONTRACEPTION
     Route: 062
  2. VITAMINS NOS [Concomitant]
     Indication: NUTRITIONAL SUPPORT
     Route: 048

REACTIONS (10)
  - ADVERSE EVENT [None]
  - AMENORRHOEA [None]
  - ILEUS PARALYTIC [None]
  - IMPAIRED GASTRIC EMPTYING [None]
  - MALNUTRITION [None]
  - MENSTRUATION IRREGULAR [None]
  - NEUROGENIC BLADDER [None]
  - PARAPLEGIA [None]
  - SPINAL CORD INJURY [None]
  - VAGINAL HAEMORRHAGE [None]
